FAERS Safety Report 6145034-4 (Version None)
Quarter: 2009Q2

REPORT INFORMATION
  Report Type: 
  Country: None (occurrence: None)
  Receive Date: 20090401
  Receipt Date: 20090401
  Transmission Date: 20091009
  Serious: Yes (Hospitalization, Disabling)
  Sender: FDA-Public Use
  Company Number: None

PATIENT
  Age: 68 Year
  Sex: Female
  Weight: 57.1532 kg

DRUGS (1)
  1. BONIVA [Suspect]
     Indication: RESORPTION BONE INCREASED
     Dosage: 150MG MONTHLY PO, ONE TIMFE
     Route: 048
     Dates: start: 20080626, end: 20080626

REACTIONS (6)
  - ATRIAL FIBRILLATION [None]
  - BONE PAIN [None]
  - DIARRHOEA [None]
  - MYALGIA [None]
  - NAUSEA [None]
  - VOMITING [None]
